FAERS Safety Report 24873939 (Version 1)
Quarter: 2025Q1

REPORT INFORMATION
  Report Type: Spontaneous
  Country: US (occurrence: None)
  Receive Date: 20250121
  Receipt Date: 20250121
  Transmission Date: 20250409
  Serious: Yes (Other)
  Sender: FDA-CTU
  Company Number: None

PATIENT
  Age: 65 Year
  Sex: Female
  Weight: 56.25 kg

DRUGS (8)
  1. KESIMPTA [Suspect]
     Active Substance: OFATUMUMAB
     Indication: Product used for unknown indication
     Route: 050
     Dates: start: 20230517
  2. TIZANIDINE [Concomitant]
     Active Substance: TIZANIDINE
  3. DALFAMPRIDINE [Concomitant]
     Active Substance: DALFAMPRIDINE
  4. VITAMIN D [Concomitant]
     Active Substance: VITAMIN D NOS
  5. C [Concomitant]
  6. VITAMIN B COMPLEX [Concomitant]
     Active Substance: CYANOCOBALAMIN\DEXPANTHENOL\NIACINAMIDE\PYRIDOXINE HYDROCHLORIDE\RIBOFLAVIN 5^-PHOSPHATE SODIUM\THIA
  7. OMEGA 3 [Concomitant]
     Active Substance: CAPSAICIN
  8. PROBIOTICS NOS [Concomitant]
     Active Substance: PROBIOTICS NOS

REACTIONS (3)
  - Peripheral swelling [None]
  - Heart rate irregular [None]
  - Heart rate increased [None]

NARRATIVE: CASE EVENT DATE: 20230620
